FAERS Safety Report 6382326-8 (Version None)
Quarter: 2009Q3

REPORT INFORMATION
  Report Type: 
  Country: None (occurrence: None)
  Receive Date: 20090925
  Receipt Date: 20090914
  Transmission Date: 20100115
  Serious: Yes (Other)
  Sender: FDA-Public Use
  Company Number: 230313M09USA

PATIENT
  Age: 52 Year
  Sex: Female

DRUGS (6)
  1. REBIF [Suspect]
     Indication: MULTIPLE SCLEROSIS
     Dosage: 44 MCG, 3 IN 1 WEEKS, SUBCUTANEOUS
     Route: 058
     Dates: start: 20040424, end: 20080101
  2. LIPITOR [Concomitant]
  3. TRICOR [Concomitant]
  4. LEVOTHYROXINE (LEVOTHYROXINE /00068001) [Concomitant]
  5. METFORMIN HCL [Concomitant]
  6. UNSPECIFIED MEDICATION (ALL OTHER THERAPEUTIC PRODUCTS) [Concomitant]

REACTIONS (4)
  - ANAEMIA [None]
  - HEPATIC STEATOSIS [None]
  - INJECTION SITE MASS [None]
  - LIVER FUNCTION TEST ABNORMAL [None]
